FAERS Safety Report 12848964 (Version 2)
Quarter: 2016Q4

REPORT INFORMATION
  Report Type: Report from Study
  Country: US (occurrence: US)
  Receive Date: 20161014
  Receipt Date: 20161026
  Transmission Date: 20170207
  Serious: Yes (Other)
  Sender: FDA-Public Use
  Company Number: US-SA-CAMP-1002970

PATIENT
  Age: 49 Year
  Sex: Female
  Weight: 58.96 kg

DRUGS (6)
  1. BACLOFEN. [Concomitant]
     Active Substance: BACLOFEN
     Indication: DRUG THERAPY
     Route: 048
     Dates: start: 20120401
  2. ALEMTUZUMAB [Suspect]
     Active Substance: ALEMTUZUMAB
     Indication: MULTIPLE SCLEROSIS
     Dosage: UNK UNK, UNK
     Route: 065
     Dates: start: 20090615
  3. ALEMTUZUMAB [Suspect]
     Active Substance: ALEMTUZUMAB
     Indication: MULTIPLE SCLEROSIS
     Dosage: INTENDED DOSE: 36 MG
     Route: 065
     Dates: start: 20120423, end: 20120425
  4. NEURONTIN [Concomitant]
     Active Substance: GABAPENTIN
     Indication: DRUG THERAPY
     Route: 048
     Dates: start: 20120401
  5. XANAX [Concomitant]
     Active Substance: ALPRAZOLAM
     Indication: DRUG THERAPY
     Route: 048
     Dates: start: 20111110
  6. ALEMTUZUMAB [Suspect]
     Active Substance: ALEMTUZUMAB
     Indication: MULTIPLE SCLEROSIS
     Dosage: UNK UNK, UNK
     Route: 065
     Dates: start: 20100617

REACTIONS (1)
  - Immune thrombocytopenic purpura [Not Recovered/Not Resolved]

NARRATIVE: CASE EVENT DATE: 20130517
